FAERS Safety Report 16210401 (Version 2)
Quarter: 2019Q4

REPORT INFORMATION
  Report Type: Report from Study
  Country: CR (occurrence: CR)
  Receive Date: 20190418
  Receipt Date: 20191118
  Transmission Date: 20200122
  Serious: Yes (Other)
  Sender: FDA-Public Use
  Company Number: PHHY2018CR069826

PATIENT
  Age: 36 Year
  Sex: Male

DRUGS (1)
  1. GILENYA [Suspect]
     Active Substance: FINGOLIMOD HYDROCHLORIDE
     Indication: PRODUCT USED FOR UNKNOWN INDICATION
     Dosage: 0.5 MG, UNK
     Route: 065
     Dates: start: 20171101

REACTIONS (15)
  - Muscle rigidity [Unknown]
  - Drug abuse [Unknown]
  - Dyskinesia [Unknown]
  - Gait disturbance [Unknown]
  - Memory impairment [Unknown]
  - Malaise [Unknown]
  - Productive cough [Unknown]
  - Fatigue [Unknown]
  - Spinal cord injury [Unknown]
  - Depression [Unknown]
  - Weight increased [Recovering/Resolving]
  - Bone marrow disorder [Unknown]
  - Dysstasia [Unknown]
  - Tremor [Unknown]
  - Dysphagia [Unknown]
